FAERS Safety Report 11456821 (Version 3)
Quarter: 2016Q1

REPORT INFORMATION
  Report Type: Report from Study
  Country: DE (occurrence: DE)
  Receive Date: 20150903
  Receipt Date: 20160129
  Transmission Date: 20160525
  Serious: Yes (Death, Life-Threatening, Hospitalization, Other)
  Sender: FDA-Public Use
  Company Number: DE-BRISTOL-MYERS SQUIBB COMPANY-BMS-2015-059394

PATIENT
  Age: 70 Year
  Sex: Male
  Weight: 92 kg

DRUGS (1)
  1. APIXABAN [Suspect]
     Active Substance: APIXABAN
     Indication: CEREBROVASCULAR ACCIDENT PROPHYLAXIS
     Dosage: 2.5 MG, BID
     Route: 048
     Dates: start: 20140110, end: 20140404

REACTIONS (6)
  - Biliary sepsis [Fatal]
  - Rectal haemorrhage [Fatal]
  - Faeces discoloured [Unknown]
  - Duodenal ulcer haemorrhage [Unknown]
  - Haematemesis [Fatal]
  - Surgery [Unknown]

NARRATIVE: CASE EVENT DATE: 20150629
